FAERS Safety Report 9104987 (Version 2)
Quarter: 2013Q1

REPORT INFORMATION
  Report Type: Spontaneous
  Country: TN (occurrence: TN)
  Receive Date: 20130220
  Receipt Date: 20130306
  Transmission Date: 20140127
  Serious: Yes (Other)
  Sender: FDA-Public Use
  Company Number: TN-PFIZER INC-2013063232

PATIENT
  Age: 29 Year
  Sex: Male

DRUGS (1)
  1. CELEBREX [Suspect]
     Indication: TENDONITIS
     Dosage: 200 MG, 1X/DAY
     Route: 048
     Dates: start: 201301, end: 20130215

REACTIONS (2)
  - Apnoea [Recovered/Resolved]
  - Palpitations [Recovered/Resolved]
